FAERS Safety Report 5329460-9 (Version None)
Quarter: 2007Q1

REPORT INFORMATION
  Report Type: 
  Country: None (occurrence: None)
  Receive Date: 20070221
  Receipt Date: 20070125
  Transmission Date: 20070707
  Serious: Yes (Other)
  Sender: FDA-Public Use
  Company Number: US-2006-020561

PATIENT
  Age: 55 Year
  Sex: Female
  Weight: 83.9 kg

DRUGS (5)
  1. CLIMARA [Suspect]
     Indication: OSTEOPOROSIS
     Dosage: 0.625 MG/D, CONT, TRANSDERMAL
     Route: 062
     Dates: start: 19970701, end: 19971201
  2. PROVERA [Suspect]
     Indication: OSTEOPOROSIS
     Dosage: 5 MG
     Dates: start: 19970701, end: 19971201
  3. PREMPRO [Suspect]
     Indication: OSTEOPOROSIS
     Dosage: 0.625/5 MG
     Dates: start: 19971201, end: 20020801
  4. NORVASC (NAPROXEN) [Concomitant]
  5. NORVASC [Concomitant]

REACTIONS (1)
  - BREAST CANCER FEMALE [None]
